FAERS Safety Report 18569758 (Version 1)
Quarter: 2020Q4

REPORT INFORMATION
  Report Type: Spontaneous
  Country: CN (occurrence: CN)
  Receive Date: 20201202
  Receipt Date: 20201202
  Transmission Date: 20210114
  Serious: Yes (Other)
  Sender: FDA-Public Use
  Company Number: NVSC2020CN319082

PATIENT
  Age: 39 Year
  Sex: Female

DRUGS (4)
  1. PREDNISONE. [Concomitant]
     Active Substance: PREDNISONE
     Dosage: (DOSE REDUCED)
     Route: 065
  2. CYCLOSPORINE. [Suspect]
     Active Substance: CYCLOSPORINE
     Indication: APLASTIC ANAEMIA
     Dosage: 3 MG/KG, QD (DIVIDED IN 2 DOSES)
     Route: 048
  3. PREDNISONE. [Concomitant]
     Active Substance: PREDNISONE
     Indication: PROPHYLAXIS
     Dosage: 1 MG/KG, QD
     Route: 065
  4. CYCLOSPORINE. [Suspect]
     Active Substance: CYCLOSPORINE
     Dosage: 1 MG/KG, QD (EVERY 3 MONTHS)
     Route: 048

REACTIONS (2)
  - Aplastic anaemia [Unknown]
  - Product use in unapproved indication [Unknown]
